FAERS Safety Report 20628172 (Version 1)
Quarter: 2022Q1

REPORT INFORMATION
  Report Type: Spontaneous
  Country: US (occurrence: None)
  Receive Date: 20220323
  Receipt Date: 20220323
  Transmission Date: 20220424
  Serious: Yes (Other)
  Sender: FDA-Public Use
  Company Number: None

PATIENT
  Age: 70 Year
  Sex: Female
  Weight: 107.1 kg

DRUGS (15)
  1. STELARA [Suspect]
     Active Substance: USTEKINUMAB
     Indication: Psoriasis
     Dosage: OTHER FREQUENCY : EVERY 12 WEEKS;?
     Route: 058
     Dates: start: 20211109, end: 20220323
  2. ALBUTEROL SULFATE [Concomitant]
     Active Substance: ALBUTEROL SULFATE
  3. ALENDRONATE SODIUM [Concomitant]
     Active Substance: ALENDRONATE SODIUM
  4. clobetasol ext [Concomitant]
  5. desoximetasone 0.05% ext [Concomitant]
  6. DOXEPIN [Concomitant]
     Active Substance: DOXEPIN
  7. DULOXETINE [Concomitant]
     Active Substance: DULOXETINE
  8. GABAPENTIN [Concomitant]
     Active Substance: GABAPENTIN
  9. hydroxyzine pamoate 25 mg [Concomitant]
  10. lisinopril 2.5 mg [Concomitant]
  11. METFORMIN [Concomitant]
     Active Substance: METFORMIN HYDROCHLORIDE
  12. nitroglycerin 0.4 mg [Concomitant]
  13. OMEPRAZOLE [Concomitant]
     Active Substance: OMEPRAZOLE
  14. SPIRONOLACTONE [Concomitant]
     Active Substance: SPIRONOLACTONE
  15. triamcinolone 0.1% ext [Concomitant]

REACTIONS (4)
  - Drug ineffective [None]
  - Pruritus [None]
  - Skin haemorrhage [None]
  - Scratch [None]

NARRATIVE: CASE EVENT DATE: 20220323
